FAERS Safety Report 4904365-3 (Version None)
Quarter: 2006Q1

REPORT INFORMATION
  Report Type: 
  Country: None (occurrence: None)
  Receive Date: 20060208
  Receipt Date: 20050826
  Transmission Date: 20060701
  Serious: No
  Sender: FDA-Public Use
  Company Number: US-GLAXOSMITHKLINE-A0571986A

PATIENT
  Sex: Female

DRUGS (10)
  1. PAXIL [Suspect]
     Indication: DEPRESSION
     Dosage: 30MG PER DAY
     Route: 048
     Dates: start: 20010101
  2. PAXIL CR [Suspect]
     Indication: DEPRESSION
     Dosage: 25MG PER DAY
     Route: 048
     Dates: start: 20011101, end: 20010101
  3. PAROXETINE HYDROCHLORIDE [Suspect]
     Indication: DEPRESSION
     Dosage: 30MG PER DAY
     Route: 048
     Dates: start: 20011001
  4. GLIPIZIDE [Concomitant]
     Route: 065
  5. AVANDIA [Concomitant]
  6. LIPITOR [Concomitant]
  7. METFORMIN HYDROCHLORIDE [Concomitant]
  8. BENICAR [Concomitant]
  9. LORAZEPAM [Concomitant]
  10. ATIVAN [Concomitant]
     Route: 065

REACTIONS (8)
  - DIZZINESS [None]
  - DRUG INEFFECTIVE [None]
  - HEADACHE [None]
  - NAUSEA [None]
  - PHOTOSENSITIVITY REACTION [None]
  - SOMNOLENCE [None]
  - SPEECH DISORDER [None]
  - TREATMENT NONCOMPLIANCE [None]
